FAERS Safety Report 7370569-6 (Version None)
Quarter: 2011Q1

REPORT INFORMATION
  Report Type: 
  Country: None (occurrence: None)
  Receive Date: 20110323
  Receipt Date: 20110311
  Transmission Date: 20110831
  Serious: Yes (Other)
  Sender: FDA-Public Use
  Company Number: DE-GILEAD-2011-0037036

PATIENT
  Sex: Male
  Weight: 90 kg

DRUGS (3)
  1. KALETRA [Concomitant]
     Indication: HIV INFECTION
     Route: 048
  2. TRUVADA [Suspect]
     Indication: HIV INFECTION
     Route: 048
  3. TELZIR [Concomitant]
     Indication: HIV INFECTION

REACTIONS (1)
  - OSTEONECROSIS [None]
